FAERS Safety Report 25593785 (Version 1)
Quarter: 2025Q3

REPORT INFORMATION
  Report Type: Spontaneous
  Country: US (occurrence: US)
  Receive Date: 20250723
  Receipt Date: 20250723
  Transmission Date: 20251020
  Serious: Yes (Other)
  Sender: APOTEX
  Company Number: US-APOTEX-2025AP010379

PATIENT
  Age: 45 Year
  Sex: Female

DRUGS (1)
  1. OLANZAPINE [Interacting]
     Active Substance: OLANZAPINE
     Indication: Psychotic disorder
     Route: 065

REACTIONS (8)
  - Urinary retention [Recovered/Resolved]
  - Memory impairment [Recovered/Resolved]
  - Condition aggravated [Recovered/Resolved]
  - Gastrooesophageal reflux disease [Recovered/Resolved]
  - Drug interaction [Unknown]
  - Constipation [Recovered/Resolved]
  - Tremor [Recovered/Resolved]
  - Increased appetite [Unknown]
